FAERS Safety Report 12218600 (Version 1)
Quarter: 2016Q1

REPORT INFORMATION
  Report Type: Spontaneous
  Country: US (occurrence: US)
  Receive Date: 20160329
  Receipt Date: 20160329
  Transmission Date: 20160526
  Serious: No
  Sender: FDA-Public Use
  Company Number: US-BAYER-2016-051239

PATIENT
  Age: 18 Year
  Sex: Female

DRUGS (1)
  1. EOVIST [Suspect]
     Active Substance: GADOXETATE DISODIUM
     Indication: NUCLEAR MAGNETIC RESONANCE IMAGING NORMAL
     Dosage: UNK UNK, ONCE
     Dates: start: 20160314, end: 20160314

REACTIONS (2)
  - Product solubility abnormal [None]
  - Extravasation [None]

NARRATIVE: CASE EVENT DATE: 20160314
